FAERS Safety Report 14799024 (Version 1)
Quarter: 2018Q2

REPORT INFORMATION
  Report Type: Spontaneous
  Country: FR (occurrence: FR)
  Receive Date: 20180424
  Receipt Date: 20180424
  Transmission Date: 20180711
  Serious: Yes (Hospitalization)
  Sender: FDA-Public Use
  Company Number: FR-009507513-1804FRA008199

PATIENT
  Age: 21 Year
  Sex: Female
  Weight: 50 kg

DRUGS (2)
  1. LAMICTAL [Interacting]
     Active Substance: LAMOTRIGINE
     Indication: BIPOLAR DISORDER
     Dosage: 450 MG, QD
     Route: 048
     Dates: start: 2017
  2. NEXPLANON [Suspect]
     Active Substance: ETONOGESTREL
     Indication: CONTRACEPTION
     Dosage: UNK
     Route: 062
     Dates: start: 2017

REACTIONS (2)
  - Drug ineffective [Recovering/Resolving]
  - Drug level decreased [Recovering/Resolving]

NARRATIVE: CASE EVENT DATE: 201801
